FAERS Safety Report 12836435 (Version 9)
Quarter: 2020Q4

REPORT INFORMATION
  Report Type: Spontaneous
  Country: JP (occurrence: JP)
  Receive Date: 20161011
  Receipt Date: 20201123
  Transmission Date: 20210113
  Serious: Yes (Hospitalization, Other)
  Sender: FDA-Public Use
  Company Number: JP-PFIZER INC-2016467898

PATIENT
  Age: 50 Year
  Sex: Male

DRUGS (5)
  1. ETOPOSIDE. [Suspect]
     Active Substance: ETOPOSIDE
     Indication: THYMOMA MALIGNANT RECURRENT
     Dosage: UNK, CYCLIC (RECEIVED 4 CYCLES)
  2. PEMETREXED. [Suspect]
     Active Substance: PEMETREXED
     Indication: THYMOMA MALIGNANT RECURRENT
     Dosage: UNK, CYCLIC (THREE CYCLES)
  3. PACLITAXEL. [Suspect]
     Active Substance: PACLITAXEL
     Indication: THYMOMA MALIGNANT RECURRENT
     Dosage: UNK, CYCLIC
  4. CISPLATIN. [Suspect]
     Active Substance: CISPLATIN
     Indication: THYMOMA MALIGNANT RECURRENT
     Dosage: UNK, CYCLIC (RECEIVED 4 CYCLES)
     Route: 065
  5. GEMCITABINE HYDROCHLORIDE. [Suspect]
     Active Substance: GEMCITABINE HYDROCHLORIDE
     Indication: THYMOMA MALIGNANT RECURRENT
     Dosage: UNK, CYCLIC

REACTIONS (5)
  - Myelosuppression [Recovering/Resolving]
  - Product use in unapproved indication [Unknown]
  - Blood bilirubin increased [Recovering/Resolving]
  - Autoimmune haemolytic anaemia [Recovering/Resolving]
  - Off label use [Unknown]
